FAERS Safety Report 24844385 (Version 1)
Quarter: 2025Q1

REPORT INFORMATION
  Report Type: Spontaneous
  Country: IT (occurrence: IT)
  Receive Date: 20250115
  Receipt Date: 20250115
  Transmission Date: 20250408
  Serious: Yes (Life-Threatening, Hospitalization, Disabling, Other)
  Sender: SANOFI AVENTIS
  Company Number: None

PATIENT
  Age: 73 Year
  Sex: Male
  Weight: 61 kg

DRUGS (1)
  1. RIFADIN [Suspect]
     Active Substance: RIFAMPIN
     Indication: Latent tuberculosis
     Route: 048
     Dates: start: 202408, end: 202410

REACTIONS (2)
  - Dialysis [Not Recovered/Not Resolved]
  - Acute kidney injury [Not Recovered/Not Resolved]

NARRATIVE: CASE EVENT DATE: 20241003
